FAERS Safety Report 9593762 (Version 5)
Quarter: 2015Q4

REPORT INFORMATION
  Report Type: Report from Study
  Country: US (occurrence: US)
  Receive Date: 20131004
  Receipt Date: 20151211
  Transmission Date: 20160305
  Serious: Yes (Other)
  Sender: FDA-Public Use
  Company Number: US-ALEXION-A201302001

PATIENT
  Age: 21 Year
  Sex: Female
  Weight: 60.77 kg

DRUGS (2)
  1. SOLIRIS [Suspect]
     Active Substance: ECULIZUMAB
     Indication: PAROXYSMAL NOCTURNAL HAEMOGLOBINURIA
     Dosage: 600 MG, QW
     Route: 042
     Dates: start: 20130621
  2. SOLIRIS [Suspect]
     Active Substance: ECULIZUMAB
     Dosage: 900 MG, Q2W
     Route: 042
     Dates: start: 20130719

REACTIONS (7)
  - Haemoglobin decreased [Recovered/Resolved]
  - Headache [Recovered/Resolved]
  - Biopsy bone marrow normal [Unknown]
  - Inappropriate schedule of drug administration [Recovered/Resolved]
  - Fatigue [Recovered/Resolved]
  - Treatment noncompliance [Recovered/Resolved]
  - Aplastic anaemia [Unknown]

NARRATIVE: CASE EVENT DATE: 20130822
